FAERS Safety Report 19580251 (Version 1)
Quarter: 2021Q3

REPORT INFORMATION
  Report Type: Spontaneous
  Country: US (occurrence: US)
  Receive Date: 20210719
  Receipt Date: 20210719
  Transmission Date: 20211014
  Serious: No
  Sender: FDA-Public Use
  Company Number: US-NOVOPROD-789085

PATIENT
  Age: 61 Year
  Sex: Male

DRUGS (2)
  1. NOVOFINE PLUS 4MM (32G) [Concomitant]
     Indication: DEVICE THERAPY
     Dosage: UNK
  2. OZEMPIC [Suspect]
     Active Substance: SEMAGLUTIDE
     Indication: TYPE 2 DIABETES MELLITUS
     Dosage: 0.25 MG, QW
     Route: 058
     Dates: start: 20210214, end: 2021

REACTIONS (2)
  - Drug intolerance [Unknown]
  - Bone pain [Not Recovered/Not Resolved]

NARRATIVE: CASE EVENT DATE: 20210214
